FAERS Safety Report 8963371 (Version 2)
Quarter: 2013Q1

REPORT INFORMATION
  Report Type: Spontaneous
  Country: US (occurrence: US)
  Receive Date: 20121214
  Receipt Date: 20130301
  Transmission Date: 20140127
  Serious: Yes (Death)
  Sender: FDA-Public Use
  Company Number: US-BRISTOL-MYERS SQUIBB COMPANY-17193459

PATIENT
  Age: 61 Year
  Sex: Male

DRUGS (2)
  1. YERVOY [Suspect]
     Indication: METASTATIC MALIGNANT MELANOMA
     Dosage: NEVER REPEATED
     Route: 042
     Dates: start: 20121019
  2. ZOMETA [Concomitant]
     Dates: start: 20121012

REACTIONS (1)
  - Malignant neoplasm progression [Fatal]
